FAERS Safety Report 16017430 (Version 1)
Quarter: 2019Q1

REPORT INFORMATION
  Report Type: Spontaneous
  Country: US (occurrence: US)
  Receive Date: 20190228
  Receipt Date: 20190228
  Transmission Date: 20190418
  Serious: No
  Sender: FDA-Public Use
  Company Number: US-DSJP-DSU-2019-107228

PATIENT

DRUGS (1)
  1. WELCHOL [Suspect]
     Active Substance: COLESEVELAM HYDROCHLORIDE
     Indication: IRRITABLE BOWEL SYNDROME
     Dosage: 1875 MG, QD
     Route: 048

REACTIONS (2)
  - Off label use [Not Recovered/Not Resolved]
  - No adverse event [Not Recovered/Not Resolved]
